FAERS Safety Report 6119889-3 (Version None)
Quarter: 2009Q1

REPORT INFORMATION
  Report Type: 
  Country: None (occurrence: None)
  Receive Date: 20090309
  Receipt Date: 20090217
  Transmission Date: 20090719
  Serious: Yes (Hospitalization)
  Sender: FDA-Public Use
  Company Number: GAM-029-09-NO

PATIENT
  Age: 64 Year
  Sex: Female

DRUGS (5)
  1. OCTAGAM [Suspect]
     Indication: MULTIFOCAL MOTOR NEUROPATHY
     Dosage: 400 MG/KG I.V.
     Route: 042
     Dates: start: 20080901, end: 20080101
  2. ALBYL-E (ACETYLSALICYLIC ACID) [Concomitant]
  3. LISINOPRIL AND DIURETICS (LISINOPRIL AND DIURETICS) [Concomitant]
  4. SELO-ZOK (METOPROLOL) [Concomitant]
  5. VAGIFEM [Concomitant]

REACTIONS (5)
  - GRANULOCYTE COUNT DECREASED [None]
  - INFUSION RELATED REACTION [None]
  - LEUKOPENIA [None]
  - NEUTROPENIA [None]
  - PLATELET COUNT DECREASED [None]
